FAERS Safety Report 16266637 (Version 1)
Quarter: 2019Q2

REPORT INFORMATION
  Report Type: Not Available
  Country: US (occurrence: US)
  Receive Date: 20190502
  Receipt Date: 20190502
  Transmission Date: 20190711
  Serious: No
  Sender: FDA-Public Use
  Company Number: US-NEUROCRINE BIOSCIENCES INC.-2019NBI01035

PATIENT
  Age: 61 Year
  Sex: Female

DRUGS (3)
  1. INSULIN [Concomitant]
     Active Substance: INSULIN NOS
  2. ENALAPRIL [Concomitant]
     Active Substance: ENALAPRIL
  3. INGREZZA [Suspect]
     Active Substance: VALBENAZINE
     Indication: TARDIVE DYSKINESIA
     Route: 048
     Dates: start: 20190314, end: 20190417

REACTIONS (2)
  - Drug ineffective [None]
  - Tardive dyskinesia [Unknown]

NARRATIVE: CASE EVENT DATE: 201903
